FAERS Safety Report 8410400-0 (Version None)
Quarter: 2012Q2

REPORT INFORMATION
  Report Type: 
  Country: None (occurrence: None)
  Receive Date: 20120529
  Receipt Date: 20060228
  Transmission Date: 20120825
  Serious: Yes (Hospitalization)
  Sender: FDA-Public Use
  Company Number: 15691-USA-06-0634

PATIENT
  Age: 76 Year
  Sex: Male

DRUGS (14)
  1. ADVAIR HFA [Concomitant]
  2. EASPRIN (ACETYLSALICYLIC ACID) [Concomitant]
  3. TOLVAPTAN (TOLVAPTAN(V4.1)) 30MG [Suspect]
     Indication: CARDIAC FAILURE CONGESTIVE
     Dosage: 30 MG, QD, ORAL
     Route: 048
     Dates: start: 20040514
  4. ATAVEX [Concomitant]
  5. DEMEDEX [Concomitant]
  6. ZANTAC [Concomitant]
  7. ATROVENT [Concomitant]
  8. ZOCOR [Concomitant]
  9. COREG [Concomitant]
  10. PROSCAR /USA/ (FINASTERIDE) [Concomitant]
  11. UROXATRAL [Concomitant]
  12. ALBUTEROL [Concomitant]
  13. COUMADIN [Concomitant]
  14. DIGOXIN [Concomitant]

REACTIONS (7)
  - HYPOVOLAEMIA [None]
  - BLOOD UREA INCREASED [None]
  - BUNDLE BRANCH BLOCK LEFT [None]
  - PLEURAL EFFUSION [None]
  - CONDITION AGGRAVATED [None]
  - BLOOD CREATININE INCREASED [None]
  - CARDIAC FAILURE CONGESTIVE [None]
